FAERS Safety Report 18596250 (Version 1)
Quarter: 2020Q4

REPORT INFORMATION
  Report Type: Spontaneous
  Country: US (occurrence: US)
  Receive Date: 20201209
  Receipt Date: 20201209
  Transmission Date: 20210114
  Serious: Yes (Other)
  Sender: FDA-Public Use
  Company Number: US-ADAMAS PHARMA, LLC-2020ADA02767

PATIENT
  Age: 61 Year
  Sex: Male

DRUGS (5)
  1. CARBIDOPA/LEVODOPA EXTENDED RELEASE [Suspect]
     Active Substance: CARBIDOPA\LEVODOPA
     Indication: PARKINSON^S DISEASE
     Dosage: AT BEDTIME
     Route: 065
  2. AMANTADINE. [Suspect]
     Active Substance: AMANTADINE HYDROCHLORIDE
     Indication: PARKINSON^S DISEASE
     Dosage: 100 MG, 3X/DAY
     Route: 065
  3. CARBIDOPA/LEVODOPA EXTENDED RELEASE [Suspect]
     Active Substance: CARBIDOPA\LEVODOPA
     Indication: PARKINSON^S DISEASE
     Dosage: UNK, 2X/DAY
     Route: 065
  4. ROPINIROLE. [Suspect]
     Active Substance: ROPINIROLE
     Indication: PARKINSON^S DISEASE
     Dosage: 8 MG, 3X/DAY
     Route: 065
  5. ARIPIPRAZOLE. [Suspect]
     Active Substance: ARIPIPRAZOLE
     Indication: TOURETTE^S DISORDER
     Dosage: 30 MG, 2X/DAY
     Route: 065

REACTIONS (4)
  - Tic [Recovering/Resolving]
  - Tremor [Recovering/Resolving]
  - Neuroprosthesis implantation [Recovering/Resolving]
  - Drug interaction [Recovering/Resolving]
